FAERS Safety Report 21838582 (Version 1)
Quarter: 2023Q1

REPORT INFORMATION
  Report Type: Report from Study
  Country: GB (occurrence: GB)
  Receive Date: 20230109
  Receipt Date: 20230109
  Transmission Date: 20230418
  Serious: Yes (Other)
  Sender: FDA-Public Use
  Company Number: GB-AMGEN-GBRSL2022141592

PATIENT
  Sex: Male

DRUGS (1)
  1. ADALIMUMAB [Suspect]
     Active Substance: ADALIMUMAB
     Indication: Crohn^s disease
     Dosage: 40 MILLIGRAM, QWK
     Route: 065

REACTIONS (5)
  - Systemic lupus erythematosus [Unknown]
  - Crohn^s disease [Unknown]
  - Product supply issue [Unknown]
  - Product prescribing error [Unknown]
  - Off label use [Unknown]
